FAERS Safety Report 5409856-7 (Version None)
Quarter: 2007Q3

REPORT INFORMATION
  Report Type: 
  Country: None (occurrence: None)
  Receive Date: 20070807
  Receipt Date: 20070726
  Transmission Date: 20080115
  Serious: Yes (Life-Threatening)
  Sender: FDA-Public Use
  Company Number: GXKR2007GB06442

PATIENT
  Age: 56 Year
  Sex: Male

DRUGS (20)
  1. AMLODIPINE [Suspect]
     Indication: HYPERTENSION
     Dosage: 10 MG,
  2. BISOPROLOL FUMARATE [Suspect]
     Indication: MYOCARDIAL ISCHAEMIA
     Dosage: 5 MG,
  3. FUROSEMIDE [Suspect]
  4. ESCITALOPRAM OXALATE [Suspect]
     Indication: DEPRESSION
     Dosage: 20 MG,
     Dates: start: 20051219
  5. ACETYLSALICYLIC ACID SRT [Concomitant]
  6. BENDROFLUAZIDE                (BENDROFLUMETHIAZIDE) [Concomitant]
  7. BETAHISTINE                    (BETAHISTINE) [Concomitant]
  8. CLOPIDOGREL [Concomitant]
  9. DIPYRIDAMOLE [Concomitant]
  10. GABAPENTIN [Concomitant]
  11. GLYCERYL TRINITRATE   (GLYCERYL TRINITRATE) [Concomitant]
  12. HYDRALAZINE HCL [Concomitant]
  13. IRBESARTAN [Concomitant]
  14. ISOSORBIDE MONONITRATE [Concomitant]
  15. NICORANDIL          (NICORANDIL) [Concomitant]
  16. NOVOMIX             (INSULIN ASPART) [Concomitant]
  17. RANITIDINE [Concomitant]
  18. ROSUVASTATIN            (ROSUVASTATIN) [Concomitant]
  19. THIAMINE            (THIAMINE) [Concomitant]
  20. ZOPICLONE           (ZOPICLONE) [Concomitant]

REACTIONS (4)
  - BRADYCARDIA [None]
  - HYPOTENSION [None]
  - MULTIPLE DRUG OVERDOSE INTENTIONAL [None]
  - SOMNOLENCE [None]
